FAERS Safety Report 4289346-8 (Version None)
Quarter: 2004Q1

REPORT INFORMATION
  Report Type: 
  Country: None (occurrence: None)
  Receive Date: 20040203
  Receipt Date: 20030715
  Transmission Date: 20041129
  Serious: Yes (Life-Threatening, Hospitalization, Other)
  Sender: FDA-Public Use
  Company Number: 200320583BWH

PATIENT
  Age: 51 Year
  Sex: Male
  Weight: 81.6475 kg

DRUGS (4)
  1. AVELOX [Suspect]
     Indication: PHARYNGOLARYNGEAL PAIN
     Dosage: 400 MG, QD, ORAL
     Route: 048
     Dates: start: 20030630, end: 20030703
  2. ADVAIR (SALMETEROL XINAFOATE/FLUTICASONE PROPIONATE) [Concomitant]
  3. COMBIVENT [Concomitant]
  4. SINGULAIR [Concomitant]

REACTIONS (6)
  - ANAPHYLACTIC REACTION [None]
  - BLOOD PRESSURE IMMEASURABLE [None]
  - OEDEMA PERIPHERAL [None]
  - PRURITUS [None]
  - RASH [None]
  - SWELLING FACE [None]
